FAERS Safety Report 10173409 (Version 1)
Quarter: 2014Q2

REPORT INFORMATION
  Report Type: Spontaneous
  Country: US (occurrence: None)
  Receive Date: 20140514
  Receipt Date: 20140514
  Transmission Date: 20141212
  Serious: Yes (Other)
  Sender: FDA-Public Use
  Company Number: None

PATIENT
  Age: 49 Year
  Sex: Female
  Weight: 68.04 kg

DRUGS (1)
  1. FLUTICASONE 50 MCG [Suspect]
     Indication: POSTOPERATIVE CARE
     Dosage: 2 SPRAY, TWICE DAILY, INHALATION
     Route: 055
     Dates: start: 20140428, end: 20140510

REACTIONS (7)
  - Fatigue [None]
  - Heart rate increased [None]
  - Insomnia [None]
  - Blood pressure increased [None]
  - Chest pain [None]
  - Pyrexia [None]
  - Headache [None]
